FAERS Safety Report 12773962 (Version 4)
Quarter: 2018Q2

REPORT INFORMATION
  Report Type: Spontaneous
  Country: US (occurrence: US)
  Receive Date: 20160923
  Receipt Date: 20180615
  Transmission Date: 20180711
  Serious: Yes (Other)
  Sender: FDA-Public Use
  Company Number: US-ASTRAZENECA-2016SE99556

PATIENT
  Age: 21255 Day
  Sex: Male
  Weight: 136.1 kg

DRUGS (58)
  1. NEXIUM [Suspect]
     Active Substance: ESOMEPRAZOLE MAGNESIUM
     Indication: PEPTIC ULCER
     Route: 048
     Dates: start: 2014
  2. NEXIUM [Suspect]
     Active Substance: ESOMEPRAZOLE MAGNESIUM
     Indication: PEPTIC ULCER
     Route: 048
     Dates: start: 20140918
  3. NEXIUM [Suspect]
     Active Substance: ESOMEPRAZOLE MAGNESIUM
     Indication: GASTROOESOPHAGEAL REFLUX DISEASE
     Dosage: 40.0MG UNKNOWN
     Route: 048
     Dates: start: 201408, end: 201412
  4. CIMETIDINE [Concomitant]
     Active Substance: CIMETIDINE
     Dosage: 400.0MG UNKNOWN
     Route: 065
     Dates: start: 20030115
  5. TRIAMTERENE-HCTZ [Concomitant]
     Active Substance: HYDROCHLOROTHIAZIDE\TRIAMTERENE
     Route: 065
     Dates: start: 20090324
  6. GABAPENTIN. [Concomitant]
     Active Substance: GABAPENTIN
     Dosage: 300.0MG UNKNOWN
     Route: 065
     Dates: start: 20101029
  7. FRAGMIN [Concomitant]
     Active Substance: DALTEPARIN SODIUM
     Route: 058
  8. FLOMAX [Concomitant]
     Active Substance: TAMSULOSIN HYDROCHLORIDE
     Indication: HYPERTENSION
     Route: 048
  9. NEXIUM [Suspect]
     Active Substance: ESOMEPRAZOLE MAGNESIUM
     Indication: GASTROOESOPHAGEAL REFLUX DISEASE
     Route: 048
     Dates: start: 20140918
  10. SUBLIMAZE [Concomitant]
     Active Substance: FENTANYL CITRATE
     Dosage: 25-50 MCG
     Route: 058
  11. EFFEXOR XR [Concomitant]
     Active Substance: VENLAFAXINE HYDROCHLORIDE
     Route: 048
  12. NEXIUM [Suspect]
     Active Substance: ESOMEPRAZOLE MAGNESIUM
     Indication: GASTROOESOPHAGEAL REFLUX DISEASE
     Route: 048
     Dates: start: 2014
  13. ATENOLOL. [Concomitant]
     Active Substance: ATENOLOL
     Route: 048
     Dates: start: 20030115
  14. NORVASC [Concomitant]
     Active Substance: AMLODIPINE BESYLATE
     Route: 048
     Dates: start: 20090407
  15. LISINOPRIL. [Concomitant]
     Active Substance: LISINOPRIL
     Dosage: 20-12.5 MG TABLET UNKNOWN
     Route: 048
     Dates: start: 20090507
  16. ELAVIL [Concomitant]
     Active Substance: AMITRIPTYLINE HYDROCHLORIDE
     Dosage: 25.0MG UNKNOWN
     Route: 065
     Dates: start: 20110627, end: 20110729
  17. NOVOLOG [Concomitant]
     Active Substance: INSULIN ASPART
     Route: 058
  18. VERSED [Concomitant]
     Active Substance: MIDAZOLAM HYDROCHLORIDE
     Dosage: 1.0MG AS REQUIRED
     Route: 040
  19. ZOFRAN [Concomitant]
     Active Substance: ONDANSETRON HYDROCHLORIDE
     Dosage: 4.0MG AS REQUIRED
     Route: 040
  20. ULTRAM [Concomitant]
     Active Substance: TRAMADOL HYDROCHLORIDE
     Route: 048
  21. MEDROL [Concomitant]
     Active Substance: METHYLPREDNISOLONE
     Route: 065
  22. DIOVAN [Concomitant]
     Active Substance: VALSARTAN
     Route: 048
     Dates: start: 20110527
  23. NEXIUM [Suspect]
     Active Substance: ESOMEPRAZOLE MAGNESIUM
     Indication: GASTRIC DISORDER
     Dosage: 40.0MG UNKNOWN
     Route: 048
     Dates: start: 201408, end: 201412
  24. DOXYCYCLINE. [Concomitant]
     Active Substance: DOXYCYCLINE
     Dosage: 100.0MG UNKNOWN
     Route: 065
  25. METOCLOPRAMIDE. [Concomitant]
     Active Substance: METOCLOPRAMIDE
     Dosage: 10.0MG UNKNOWN
     Route: 065
     Dates: start: 20001013
  26. AMLODIPINE BESYLAT [Concomitant]
     Active Substance: AMLODIPINE BESYLATE
     Route: 065
     Dates: start: 20090324
  27. ROMAZICON [Concomitant]
     Active Substance: FLUMAZENIL
     Dosage: 0.2MG AS REQUIRED
     Route: 065
  28. FLONASE [Concomitant]
     Active Substance: FLUTICASONE PROPIONATE
     Dosage: 50 MEG/ACTUATION NASAL SPRAY
     Route: 045
  29. HYGROTON [Concomitant]
     Active Substance: CHLORTHALIDONE
     Indication: HYPERTENSION
     Route: 048
  30. CLARITIN [Concomitant]
     Active Substance: LORATADINE
     Route: 048
  31. OMEPRAZOLE. [Suspect]
     Active Substance: OMEPRAZOLE
     Dosage: 40.0MG UNKNOWN
     Route: 048
     Dates: start: 200909, end: 201107
  32. DULCOLAX NOS [Concomitant]
     Active Substance: BISACODYL OR DOCUSATE SODIUM
     Dosage: 100.0MG UNKNOWN
     Route: 065
     Dates: start: 20110729
  33. PROTONIX [Concomitant]
     Active Substance: PANTOPRAZOLE SODIUM
     Route: 048
  34. NEXIUM [Suspect]
     Active Substance: ESOMEPRAZOLE MAGNESIUM
     Indication: PEPTIC ULCER
     Dosage: 40.0MG UNKNOWN
     Route: 048
     Dates: start: 201408, end: 201412
  35. MOTRIN [Concomitant]
     Active Substance: IBUPROFEN
     Dosage: 800.0MG AS REQUIRED
     Route: 065
     Dates: start: 20001006
  36. HYDROCHLOROTHIAZID [Concomitant]
     Active Substance: HYDROCHLOROTHIAZIDE
     Dosage: 100.0MG UNKNOWN
     Route: 065
     Dates: start: 20001013
  37. ASPIR-LOW EC [Concomitant]
     Route: 048
     Dates: start: 20090324
  38. TERAZOSIN [Concomitant]
     Active Substance: TERAZOSIN\TERAZOSIN HYDROCHLORIDE
     Dosage: 2.0MG UNKNOWN
     Route: 065
     Dates: start: 20090710
  39. PRILOSEC [Concomitant]
     Active Substance: OMEPRAZOLE MAGNESIUM
     Route: 048
     Dates: start: 20090918
  40. CLONIDINE HYDROCHLORIDE. [Concomitant]
     Active Substance: CLONIDINE HYDROCHLORIDE
     Route: 065
     Dates: start: 20100405
  41. TOPROL XL [Concomitant]
     Active Substance: METOPROLOL SUCCINATE
     Dosage: 50 MEG/ACTUATION NASAL SPRAY
     Route: 048
  42. PREDNISONE. [Concomitant]
     Active Substance: PREDNISONE
     Route: 048
  43. NEXIUM [Suspect]
     Active Substance: ESOMEPRAZOLE MAGNESIUM
     Indication: GASTRIC DISORDER
     Route: 048
     Dates: start: 20140918
  44. ELAVIL [Concomitant]
     Active Substance: AMITRIPTYLINE HYDROCHLORIDE
     Dosage: 100.0MG UNKNOWN
     Route: 065
     Dates: start: 20110729
  45. PROVENTIL [Concomitant]
     Active Substance: ALBUTEROL
     Dosage: 90 MEG/ACTUATION INHALATION AEROSOL 2 PUFF, NEBULIZER SOLUTION 2.5 MG0.2MG AS REQUIRED
     Route: 065
  46. AVELOX [Concomitant]
     Active Substance: MOXIFLOXACIN HYDROCHLORIDE
     Route: 048
  47. MORPHINE [Concomitant]
     Active Substance: MORPHINE
     Route: 040
  48. ATARAX [Concomitant]
     Active Substance: HYDROXYZINE HYDROCHLORIDE
     Route: 048
  49. CATAPRES [Concomitant]
     Active Substance: CLONIDINE HYDROCHLORIDE
     Indication: HYPERTENSION
     Dosage: APPLY 1 PATCH EVERY 7 DAYS AT 9 AM.`
     Route: 048
  50. BECONASE AQ [Concomitant]
     Active Substance: BECLOMETHASONE DIPROPIONATE MONOHYDRATE
     Dosage: 2 SPRAYS BY EACH NOSTRIL ROUTE DAILY. - EACH NOSTRIL
     Route: 065
  51. NEXIUM [Suspect]
     Active Substance: ESOMEPRAZOLE MAGNESIUM
     Indication: GASTRIC DISORDER
     Route: 048
     Dates: start: 2014
  52. CELEBREX [Concomitant]
     Active Substance: CELECOXIB
     Dosage: 200.0MG UNKNOWN
     Route: 065
     Dates: start: 20001201
  53. ALTACE [Concomitant]
     Active Substance: RAMIPRIL
     Dosage: 2.5MG UNKNOWN
     Route: 065
     Dates: start: 20001201
  54. ROXICODONE [Concomitant]
     Active Substance: OXYCODONE HYDROCHLORIDE
     Dosage: 10.0MG AS REQUIRED
     Route: 048
  55. NARCAN [Concomitant]
     Active Substance: NALOXONE HYDROCHLORIDE
     Dosage: 0.08MG AS REQUIRED
     Route: 065
  56. APRESOLINE HYDROCHLORIDE [Concomitant]
     Active Substance: HYDRALAZINE HYDROCHLORIDE
     Dosage: 10.0MG AS REQUIRED
     Route: 048
  57. ANCEF [Concomitant]
     Active Substance: CEFAZOLIN SODIUM
     Route: 040
  58. TORADOL [Concomitant]
     Active Substance: KETOROLAC TROMETHAMINE
     Dosage: 50 MEG/ACTUATION NASAL SPRAY
     Route: 065

REACTIONS (3)
  - Acute kidney injury [Unknown]
  - End stage renal disease [Unknown]
  - Tubulointerstitial nephritis [Unknown]

NARRATIVE: CASE EVENT DATE: 20140918
